FAERS Safety Report 4436196-5 (Version None)
Quarter: 2004Q3

REPORT INFORMATION
  Report Type: 
  Country: None (occurrence: None)
  Receive Date: 20040830
  Receipt Date: 20040512
  Transmission Date: 20050211
  Serious: No
  Sender: FDA-Public Use
  Company Number: US-BRISTOL-MYERS SQUIBB COMPANY-12586368

PATIENT
  Age: 67 Year
  Sex: Male
  Weight: 85 kg

DRUGS (8)
  1. ERBITUX [Suspect]
     Dates: start: 20040401, end: 20040401
  2. DECADRON [Concomitant]
     Indication: PREMEDICATION
     Route: 042
     Dates: start: 20040401, end: 20040401
  3. KYTRIL [Concomitant]
     Indication: PREMEDICATION
     Route: 042
     Dates: start: 20040401, end: 20040401
  4. EFFEXOR [Concomitant]
  5. PERCOCET [Concomitant]
  6. NEXIUM [Concomitant]
  7. COLACE [Concomitant]
  8. IRON SUPPLEMENT [Concomitant]

REACTIONS (2)
  - ACNE [None]
  - PARONYCHIA [None]
